FAERS Safety Report 8625041-X (Version None)
Quarter: 2012Q3

REPORT INFORMATION
  Report Type: 
  Country: None (occurrence: None)
  Receive Date: 20120827
  Receipt Date: 20120823
  Transmission Date: 20120928
  Serious: No
  Sender: FDA-Public Use
  Company Number: US-ELI_LILLY_AND_COMPANY-US201205007336

PATIENT
  Sex: Female

DRUGS (6)
  1. ADCIRCA [Suspect]
     Indication: PULMONARY HYPERTENSION
     Dosage: 40 MG, QD
     Dates: start: 20120504
  2. SPIRIVA [Concomitant]
  3. HYDRALAZINE HCL [Concomitant]
     Dosage: 10 MG, UNK
  4. LISINOPRIL [Concomitant]
     Dosage: 20 MG, UNK
  5. KLOR-CON [Concomitant]
     Dosage: 10 MEQ, UNK
  6. LASIX [Concomitant]
     Dosage: 20 MG, UNK

REACTIONS (3)
  - HYPOACUSIS [None]
  - VISUAL IMPAIRMENT [None]
  - GASTROOESOPHAGEAL REFLUX DISEASE [None]
